FAERS Safety Report 6162857-6 (Version None)
Quarter: 2009Q2

REPORT INFORMATION
  Report Type: 
  Country: None (occurrence: None)
  Receive Date: 20090421
  Receipt Date: 20081113
  Transmission Date: 20091009
  Serious: No
  Sender: FDA-Public Use
  Company Number: US-ASTRAZENECA-2008UW25415

PATIENT
  Age: 45 Year
  Sex: Male
  Weight: 88.5 kg

DRUGS (4)
  1. TOPROL-XL [Suspect]
     Indication: TACHYCARDIA
     Route: 048
     Dates: start: 20070101
  2. TOPROL-XL [Suspect]
     Route: 048
  3. HYDROCHLOROTHIAZIDE [Concomitant]
  4. PREVACID [Concomitant]

REACTIONS (1)
  - LIPIDS INCREASED [None]
